FAERS Safety Report 12620774 (Version 1)
Quarter: 2016Q3

REPORT INFORMATION
  Report Type: Spontaneous
  Country: US (occurrence: US)
  Receive Date: 20160804
  Receipt Date: 20160804
  Transmission Date: 20161109
  Serious: No
  Sender: FDA-Public Use
  Company Number: US-RECORDATI RARE DISEASES-US-R13005-15-00095

PATIENT
  Age: 56 Year
  Sex: Female

DRUGS (2)
  1. TRANXENE T-TAB [Suspect]
     Active Substance: CLORAZEPATE DIPOTASSIUM
     Indication: DRUG DETOXIFICATION
     Route: 048
     Dates: start: 201505, end: 201505
  2. OXYCONTIN [Concomitant]
     Active Substance: OXYCODONE HYDROCHLORIDE
     Indication: BACK PAIN
     Route: 065

REACTIONS (2)
  - Off label use [Recovered/Resolved]
  - Drug screen positive [Unknown]

NARRATIVE: CASE EVENT DATE: 2015
